FAERS Safety Report 17641189 (Version 2)
Quarter: 2020Q2

REPORT INFORMATION
  Report Type: Spontaneous
  Country: US (occurrence: US)
  Receive Date: 20200407
  Receipt Date: 20200410
  Transmission Date: 20200713
  Serious: No
  Sender: FDA-Public Use
  Company Number: US-PFIZER INC-2020141984

PATIENT
  Sex: Male

DRUGS (1)
  1. EMBEDA [Suspect]
     Active Substance: MORPHINE SULFATE\NALTREXONE HYDROCHLORIDE
     Dosage: UNK, DAILY (MORPHINE SULFATE-100 MG/NALTREXONE HYDROCHLORIDE-4 MG)

REACTIONS (2)
  - Drug ineffective [Unknown]
  - Drug tolerance increased [Unknown]
